FAERS Safety Report 5191100-X (Version None)
Quarter: 2006Q4

REPORT INFORMATION
  Report Type: 
  Country: None (occurrence: None)
  Receive Date: 20061226
  Receipt Date: 20061215
  Transmission Date: 20070319
  Serious: Yes (Other)
  Sender: FDA-Public Use
  Company Number: PHBS2006ES19727

PATIENT
  Age: 69 Year
  Sex: Female

DRUGS (1)
  1. IMATINIB MESYLATE [Suspect]
     Indication: CHRONIC MYELOID LEUKAEMIA
     Dosage: 400 MG/DAY
     Dates: start: 20050601

REACTIONS (7)
  - BURNING SENSATION MUCOSAL [None]
  - LICHENOID KERATOSIS [None]
  - ORAL MUCOSA EROSION [None]
  - ORAL PAIN [None]
  - PRURITUS [None]
  - RASH PAPULAR [None]
  - SKIN HYPERPIGMENTATION [None]
